FAERS Safety Report 7115227-8 (Version None)
Quarter: 2010Q4

REPORT INFORMATION
  Report Type: 
  Country: None (occurrence: None)
  Receive Date: 20101122
  Receipt Date: 20101116
  Transmission Date: 20110411
  Serious: Yes (Death, Other)
  Sender: FDA-Public Use
  Company Number: PHHY2010US77841

PATIENT
  Age: 60 Year
  Sex: Female

DRUGS (3)
  1. METOPROLOL TARTRATE [Suspect]
  2. NAPROXEN [Suspect]
     Dosage: UNK
  3. AMLODIPINE [Suspect]

REACTIONS (3)
  - BLOOD PH DECREASED [None]
  - HYPOTENSION [None]
  - OVERDOSE [None]
